FAERS Safety Report 8722049 (Version 7)
Quarter: 2012Q4

REPORT INFORMATION
  Report Type: 
  Country: GB (occurrence: GB)
  Receive Date: 20120814
  Receipt Date: 20121112
  Transmission Date: 20130627
  Serious: Yes (Other)
  Sender: FDA-Public Use
  Company Number: PHFR2012GB004451

PATIENT
  Sex: Female
  Weight: 65 kg

DRUGS (2)
  1. LAMISIL [Suspect]
     Indication: ONYCHOMYCOSIS
     Dosage: 250 mg, QD (daily)
     Route: 048
     Dates: start: 201111, end: 201208
  2. LISINOPRIL [Concomitant]
     Indication: HYPERTENSION
     Dosage: 10 mg, QD (daily)
     Route: 048
     Dates: start: 2008

REACTIONS (2)
  - Enzyme inhibition [Unknown]
  - Depression [Unknown]
